FAERS Safety Report 6647800-5 (Version None)
Quarter: 2010Q1

REPORT INFORMATION
  Report Type: 
  Country: None (occurrence: None)
  Receive Date: 20100324
  Receipt Date: 20100318
  Transmission Date: 20100710
  Serious: Yes (Hospitalization)
  Sender: FDA-Public Use
  Company Number: US-BIOGENIDEC-2010BI009162

PATIENT
  Age: 51 Year
  Sex: Female
  Weight: 40 kg

DRUGS (2)
  1. AVONEX [Suspect]
     Indication: MULTIPLE SCLEROSIS
     Route: 030
     Dates: start: 20100107
  2. ASPIRIN [Concomitant]
     Indication: ANGIOPATHY

REACTIONS (12)
  - BACK PAIN [None]
  - DRY EYE [None]
  - DYSARTHRIA [None]
  - DYSPHEMIA [None]
  - EYE PAIN [None]
  - FATIGUE [None]
  - FIBROMYALGIA [None]
  - INFLUENZA LIKE ILLNESS [None]
  - MIGRAINE [None]
  - MULTIPLE SCLEROSIS RELAPSE [None]
  - STRESS [None]
  - VISION BLURRED [None]
